FAERS Safety Report 7171696-9 (Version None)
Quarter: 2010Q4

REPORT INFORMATION
  Report Type: 
  Country: None (occurrence: None)
  Receive Date: 20101217
  Receipt Date: 20100126
  Transmission Date: 20110411
  Serious: No
  Sender: FDA-Public Use
  Company Number: US-AMGEN-KDL388246

PATIENT

DRUGS (6)
  1. ENBREL [Suspect]
     Indication: PRODUCT USED FOR UNKNOWN INDICATION
     Dosage: 50 MG, QWK
     Route: 058
  2. DILTIAZEM HYDROCHLORIDE [Suspect]
     Dosage: 240 MG, UNK
  3. PREDNISONE [Concomitant]
     Dosage: 5 MG, UNK
     Route: 048
  4. CLONAZEPAM [Concomitant]
     Dosage: 1 MG, UNK
     Route: 048
  5. LISINOPRIL [Concomitant]
     Dosage: 20 MG, UNK
     Route: 048
  6. ESOMEPRAZOLE MAGNESIUM [Concomitant]
     Dosage: 40 MG, UNK
     Route: 048

REACTIONS (4)
  - COUGH [None]
  - LACRIMATION INCREASED [None]
  - OROPHARYNGEAL PAIN [None]
  - RHINORRHOEA [None]
